FAERS Safety Report 20903919 (Version 2)
Quarter: 2022Q3

REPORT INFORMATION
  Report Type: Report from Study
  Country: US (occurrence: US)
  Receive Date: 20220602
  Receipt Date: 20220825
  Transmission Date: 20221027
  Serious: Yes (Other)
  Sender: FDA-Public Use
  Company Number: US-BRISTOL-MYERS SQUIBB COMPANY-2022-045410

PATIENT
  Age: 67 Year
  Sex: Male
  Weight: 65.77 kg

DRUGS (5)
  1. POMALYST [Suspect]
     Active Substance: POMALIDOMIDE
     Indication: Plasma cell myeloma
     Dosage: FREQUENCY: 21 OUT OF 28 DAYS?EXPIRY DATE: 31-OCT-2025
     Route: 048
     Dates: start: 20220216
  2. POMALYST [Suspect]
     Active Substance: POMALIDOMIDE
     Indication: Plasma cell myeloma in remission
  3. PREDNISONE [Concomitant]
     Active Substance: PREDNISONE
     Indication: Viral infection
     Route: 065
  4. guaifenesin-codeine [Concomitant]
     Indication: Viral infection
     Route: 065
  5. LEVOFLOXACIN [Concomitant]
     Active Substance: LEVOFLOXACIN
     Indication: Viral infection
     Route: 065

REACTIONS (6)
  - Viral infection [Unknown]
  - Nasopharyngitis [Unknown]
  - Cough [Unknown]
  - Respiratory tract congestion [Unknown]
  - Feeling hot [Unknown]
  - Product dose omission issue [Unknown]
